FAERS Safety Report 25489071 (Version 1)
Quarter: 2025Q2

REPORT INFORMATION
  Report Type: Spontaneous
  Country: SE (occurrence: SE)
  Receive Date: 20250627
  Receipt Date: 20250627
  Transmission Date: 20250716
  Serious: Yes (Death, Hospitalization)
  Sender: JOHNSON AND JOHNSON
  Company Number: None

PATIENT
  Age: 90 Year
  Sex: Female
  Weight: 42 kg

DRUGS (13)
  1. RISPERIDONE [Suspect]
     Active Substance: RISPERIDONE
     Indication: Product used for unknown indication
     Dosage: DOSE 0.25 ML MORNING AND EVENING. OVERDOSE: UNKNOWN DOSE.
     Route: 048
     Dates: start: 20250514, end: 20250604
  2. RISPERIDONE [Suspect]
     Active Substance: RISPERIDONE
  3. CARBOMER [Concomitant]
     Active Substance: CARBOMER
     Indication: Dry eye
     Dosage: MAY BE INCREASED TO 4 TIMES/DAY IF NECESSARY.
     Dates: start: 20250205
  4. ASPIRIN [Concomitant]
     Active Substance: ASPIRIN
     Indication: Product used for unknown indication
     Dates: start: 20250508
  5. POTASSIUM CITRATE [Concomitant]
     Active Substance: POTASSIUM CITRATE
     Indication: Hypokalaemia
     Dates: start: 20250520
  6. ATORVASTATIN [Concomitant]
     Active Substance: ATORVASTATIN
     Indication: Product used for unknown indication
     Dates: start: 20250508
  7. ROBINUL [Concomitant]
     Active Substance: GLYCOPYRROLATE
     Indication: Productive cough
     Dates: start: 20250427
  8. Alvedon eller Paracetamol Accord [Concomitant]
     Indication: Pain
     Dates: start: 20250205
  9. Movicol eller Laximyl [Concomitant]
     Indication: Constipation
     Dates: start: 20250514
  10. SYMBICORT [Concomitant]
     Active Substance: BUDESONIDE\FORMOTEROL FUMARATE DIHYDRATE
     Indication: Productive cough
     Dosage: EXTRA IF NEEDED.
     Dates: start: 20250407
  11. SYMBICORT [Concomitant]
     Active Substance: BUDESONIDE\FORMOTEROL FUMARATE DIHYDRATE
     Indication: Cough
  12. CARBOMER [Concomitant]
     Active Substance: CARBOMER
     Indication: Product used for unknown indication
     Dates: start: 20250131
  13. LEVOTHYROXINE SODIUM [Concomitant]
     Active Substance: LEVOTHYROXINE SODIUM
     Indication: Hypothyroidism
     Dates: start: 20250508

REACTIONS (5)
  - Toxicity to various agents [Fatal]
  - Accidental overdose [Fatal]
  - Anxiety [Fatal]
  - Hypophagia [Fatal]
  - Fatigue [Fatal]

NARRATIVE: CASE EVENT DATE: 20250529
